FAERS Safety Report 20265669 (Version 5)
Quarter: 2022Q1

REPORT INFORMATION
  Report Type: Spontaneous
  Country: AU (occurrence: AU)
  Receive Date: 20211231
  Receipt Date: 20220316
  Transmission Date: 20220423
  Serious: Yes (Life-Threatening, Hospitalization, Other)
  Sender: FDA-Public Use
  Company Number: AU-PFIZER INC-2017551388

PATIENT
  Age: 43 Year
  Sex: Male
  Weight: 110 kg

DRUGS (20)
  1. CLOZAPINE [Suspect]
     Active Substance: CLOZAPINE
     Indication: Schizophrenia
     Dosage: UNK
     Route: 048
     Dates: start: 20171201
  2. CLOZAPINE [Suspect]
     Active Substance: CLOZAPINE
     Dosage: 80 MG, DAILY
     Route: 048
     Dates: start: 20171207, end: 20171218
  3. CLOZAPINE [Suspect]
     Active Substance: CLOZAPINE
     Dosage: 12.5 MG, IN THE MORNING
     Dates: start: 20220223, end: 20220224
  4. CLOZAPINE [Suspect]
     Active Substance: CLOZAPINE
     Dosage: 25 MG, IN THE MORNING
     Dates: start: 20220225, end: 20220228
  5. CLOZAPINE [Suspect]
     Active Substance: CLOZAPINE
     Dosage: 25 MG, IN THE MORNING AND NIGHT
     Dates: start: 20220301, end: 20220302
  6. CLOZAPINE [Suspect]
     Active Substance: CLOZAPINE
     Dosage: UNK
     Dates: start: 20171201
  7. ATORVASTATIN CALCIUM [Suspect]
     Active Substance: ATORVASTATIN CALCIUM
     Indication: Prophylaxis
     Dosage: 40 MG, DAILY
     Route: 048
  8. BREXPIPRAZOLE [Concomitant]
     Active Substance: BREXPIPRAZOLE
     Indication: Schizophrenia
     Dosage: 6 MG, DAILY, NOCTE, (AT NIGHT)
  9. PALIPERIDONE [Concomitant]
     Active Substance: PALIPERIDONE
     Indication: Schizophrenia
     Dosage: 6 MG, DAILY, NOCTE (AT NIGHT)
  10. CLOMIPRAMINE HYDROCHLORIDE [Concomitant]
     Active Substance: CLOMIPRAMINE HYDROCHLORIDE
     Dosage: UNK
  11. RISPERIDONE [Concomitant]
     Active Substance: RISPERIDONE
     Dosage: UNK
  12. FERROUS FUMARATE [Concomitant]
     Active Substance: FERROUS FUMARATE
     Dosage: UNK
  13. VITAMIN C [Concomitant]
     Active Substance: ASCORBIC ACID
     Dosage: UNK
  14. GEMFIBROZIL [Concomitant]
     Active Substance: GEMFIBROZIL
     Dosage: UNK
  15. ARIPIPRAZOLE AN [Concomitant]
     Dosage: UNK
  16. ELEVIT PRONATAL [ASCORBIC ACID;BIOTIN;CALCIUM;CALCIUM PANTOTHENATE;COP [Concomitant]
     Dosage: UNK
  17. QUETIAPINE [Concomitant]
     Active Substance: QUETIAPINE
     Dosage: UNK
  18. METFORMIN HYDROCHLORIDE [Concomitant]
     Active Substance: METFORMIN HYDROCHLORIDE
     Dosage: UNK
  19. ERYTHROMYCIN [Concomitant]
     Active Substance: ERYTHROMYCIN
     Dosage: UNK
  20. ASENAPINE [Concomitant]
     Active Substance: ASENAPINE
     Dosage: UNK

REACTIONS (32)
  - Myocarditis [Recovered/Resolved]
  - Pyrexia [Unknown]
  - Upper respiratory tract infection [Unknown]
  - Syncope [Unknown]
  - Electrocardiogram QT prolonged [Unknown]
  - Respiratory tract infection [Unknown]
  - Vomiting [Unknown]
  - Cardiomyopathy [Unknown]
  - Cyst [Unknown]
  - Rales [Unknown]
  - Lower respiratory tract infection [Unknown]
  - Paranoia [Unknown]
  - Hallucination, auditory [Unknown]
  - Aortic valve incompetence [Unknown]
  - Pericardial effusion [Unknown]
  - Electrocardiogram ST segment elevation [Unknown]
  - Mitral valve incompetence [Unknown]
  - Tricuspid valve incompetence [Unknown]
  - Pulmonary valve incompetence [Unknown]
  - Leukopenia [Unknown]
  - Ventricular dyssynchrony [Unknown]
  - Generalised anxiety disorder [Unknown]
  - Left ventricular dysfunction [Unknown]
  - Coronary artery disease [Unknown]
  - Dizziness [Unknown]
  - Malaise [Unknown]
  - Orthostatic hypotension [Unknown]
  - Pain [Unknown]
  - Electrocardiogram abnormal [Unknown]
  - Lymphopenia [Unknown]
  - Dehydration [Unknown]
  - Decreased appetite [Unknown]

NARRATIVE: CASE EVENT DATE: 20171218
